FAERS Safety Report 24548300 (Version 1)
Quarter: 2024Q4

REPORT INFORMATION
  Report Type: Spontaneous
  Country: US (occurrence: US)
  Receive Date: 20241025
  Receipt Date: 20241025
  Transmission Date: 20250115
  Serious: No
  Sender: XERIS PHARMACEUTICALS
  Company Number: US-BRIAN CONNER SVP QUALITY AND CHIEF COMPLIANCE OFFICER-2024XER00333

PATIENT
  Sex: Male

DRUGS (6)
  1. RECORLEV [Suspect]
     Active Substance: LEVOKETOCONAZOLE
     Indication: Cushing^s syndrome
     Dosage: 150 MG, 1X/DAY
     Route: 048
     Dates: start: 202406, end: 2024
  2. RECORLEV [Suspect]
     Active Substance: LEVOKETOCONAZOLE
     Dosage: 1 TABLET (150 MG), 2X/DAY
     Route: 048
     Dates: start: 2024, end: 2024
  3. RECORLEV [Suspect]
     Active Substance: LEVOKETOCONAZOLE
     Dosage: 1 TABLET (150 MG), 1X/DAY
     Route: 048
     Dates: start: 20240714
  4. OMEPRAZOLE [Suspect]
     Active Substance: OMEPRAZOLE
     Dosage: UNK
     Dates: start: 2024
  5. PEPCID [Concomitant]
     Active Substance: FAMOTIDINE
  6. SILDENAFIL [Concomitant]
     Active Substance: SILDENAFIL
     Indication: Erectile dysfunction
     Dosage: UNK, 1X/DAY

REACTIONS (12)
  - Gastrointestinal disorder [Unknown]
  - Brain fog [Recovering/Resolving]
  - Aphasia [Unknown]
  - Blood pressure diastolic increased [Not Recovered/Not Resolved]
  - Stress [Not Recovered/Not Resolved]
  - Drug interaction [Not Recovered/Not Resolved]
  - Blood pressure increased [Not Recovered/Not Resolved]
  - Fatigue [Recovering/Resolving]
  - Dizziness [Recovering/Resolving]
  - Dyspepsia [Recovering/Resolving]
  - Unevaluable event [Recovering/Resolving]
  - Cortisol decreased [Not Recovered/Not Resolved]

NARRATIVE: CASE EVENT DATE: 20240101
